FAERS Safety Report 18791355 (Version 2)
Quarter: 2021Q1

REPORT INFORMATION
  Report Type: Spontaneous
  Country: US (occurrence: US)
  Receive Date: 20210127
  Receipt Date: 20210222
  Transmission Date: 20210419
  Serious: No
  Sender: FDA-Public Use
  Company Number: US-ASTRAZENECA-2021A005203

PATIENT
  Age: 73 Year
  Sex: Female
  Weight: 70.3 kg

DRUGS (5)
  1. FASENRA [Suspect]
     Active Substance: BENRALIZUMAB
     Indication: ASTHMA
     Route: 058
     Dates: start: 20200415
  2. FASENRA [Suspect]
     Active Substance: BENRALIZUMAB
     Indication: HYPERSENSITIVITY
     Route: 058
     Dates: start: 20200415
  3. SIMVASTATIN. [Concomitant]
     Active Substance: SIMVASTATIN
     Indication: BLOOD CHOLESTEROL INCREASED
     Route: 048
  4. BONIVA [Concomitant]
     Active Substance: IBANDRONATE SODIUM
     Route: 055
  5. DULERA [Concomitant]
     Active Substance: FORMOTEROL FUMARATE DIHYDRATE\MOMETASONE FUROATE
     Indication: ASTHMA
     Route: 055

REACTIONS (4)
  - Exposed bone in jaw [Unknown]
  - Stress [Unknown]
  - Intentional product misuse [Unknown]
  - Pain in jaw [Unknown]

NARRATIVE: CASE EVENT DATE: 2020
